FAERS Safety Report 8661779 (Version 3)
Quarter: 2012Q4

REPORT INFORMATION
  Report Type: Report from Study
  Country: PL (occurrence: PL)
  Receive Date: 20120712
  Receipt Date: 20121001
  Transmission Date: 20130627
  Serious: Yes (Hospitalization)
  Sender: FDA-Public Use
  Company Number: PL-UCBSA-061252

PATIENT
  Age: 57 Year
  Sex: Female
  Weight: 117 kg

DRUGS (5)
  1. CERTOLIZUMAB PEGOL [Suspect]
     Indication: PSORIATIC ARTHROPATHY
     Route: 058
     Dates: start: 20120215, end: 20120703
  2. LOSACOR [Concomitant]
     Indication: HYPERTENSION
     Dates: start: 2008
  3. FUROSEMID [Concomitant]
     Indication: HYPERTENSION
     Dates: start: 2008
  4. SPIRONOLACTONE [Concomitant]
     Indication: HYPERTENSION
     Dates: start: 2008
  5. BI-PROFENID [Concomitant]
     Indication: PSORIATIC ARTHROPATHY
     Dates: start: 201102

REACTIONS (1)
  - Erysipelas [Recovered/Resolved]
